FAERS Safety Report 4489951-X (Version None)
Quarter: 2004Q4

REPORT INFORMATION
  Report Type: 
  Country: None (occurrence: None)
  Receive Date: 20041101
  Receipt Date: 20040628
  Transmission Date: 20050328
  Serious: Yes (Death, Congenital Anomaly)
  Sender: FDA-Public Use
  Company Number: GB-GLAXOSMITHKLINE-B0337032A

PATIENT

DRUGS (3)
  1. RETROVIR [Suspect]
     Indication: HIV INFECTION
     Dosage: 250MG TWICE PER DAY
     Dates: start: 20000122
  2. DIDANOSINE [Suspect]
     Indication: HIV INFECTION
     Dosage: 400MG PER DAY
     Dates: start: 20040122
  3. NEVIRAPINE [Suspect]
     Indication: HIV INFECTION
     Dosage: 400MG PER DAY
     Dates: start: 20000122

REACTIONS (5)
  - CONGENITAL CENTRAL NERVOUS SYSTEM ANOMALY [None]
  - DRUG EXPOSURE DURING PREGNANCY [None]
  - INTRA-UTERINE DEATH [None]
  - PULMONARY HYPOPLASIA [None]
  - STILLBIRTH [None]
